FAERS Safety Report 7459923-1 (Version None)
Quarter: 2011Q2

REPORT INFORMATION
  Report Type: 
  Country: None (occurrence: None)
  Receive Date: 20110427
  Receipt Date: 20110412
  Transmission Date: 20111010
  Serious: Yes (Other)
  Sender: FDA-Public Use
  Company Number: AUR-APL-2011-01285

PATIENT
  Age: 33 Year
  Sex: Female

DRUGS (6)
  1. CARVEDILOL [Concomitant]
  2. CARDIOASPIRIN (ACETYLSALICYLIC ACID GASTRO-RESISTANT TABLETS) [Concomitant]
  3. LANOXIN [Concomitant]
  4. CEFTRIAXONE SODIUM [Suspect]
     Dates: start: 20110328, end: 20110328
  5. LASIX [Concomitant]
  6. RAMIPRIL [Concomitant]

REACTIONS (2)
  - DYSPNOEA [None]
  - FACE OEDEMA [None]
